FAERS Safety Report 8246314-9 (Version None)
Quarter: 2012Q1

REPORT INFORMATION
  Report Type: 
  Country: None (occurrence: None)
  Receive Date: 20120330
  Receipt Date: 20120323
  Transmission Date: 20120608
  Serious: No
  Sender: FDA-Public Use
  Company Number: US-BAYER-2012-029074

PATIENT
  Sex: Female

DRUGS (2)
  1. MIRENA [Suspect]
     Indication: MENSTRUATION IRREGULAR
  2. MIRENA [Suspect]
     Indication: CONTRACEPTION
     Dosage: 20 MCG/24HR, CONT
     Route: 015
     Dates: start: 20111001

REACTIONS (17)
  - ACNE [None]
  - HEADACHE [None]
  - TEARFULNESS [None]
  - LIBIDO DECREASED [None]
  - PROCEDURAL PAIN [None]
  - AMENORRHOEA [None]
  - HAIR GROWTH ABNORMAL [None]
  - DEPRESSION [None]
  - NERVOUSNESS [None]
  - VERTIGO [None]
  - HAIR TEXTURE ABNORMAL [None]
  - METRORRHAGIA [None]
  - ALOPECIA [None]
  - BACK PAIN [None]
  - ECZEMA [None]
  - ANXIETY [None]
  - DRY SKIN [None]
